FAERS Safety Report 9687836 (Version 2)
Quarter: 2013Q4

REPORT INFORMATION
  Report Type: Report from Study
  Country: EG (occurrence: EG)
  Receive Date: 20131114
  Receipt Date: 20131128
  Transmission Date: 20140711
  Serious: No
  Sender: FDA-Public Use
  Company Number: EG-ROCHE-1303946

PATIENT
  Age: 44 Year
  Sex: Female
  Weight: 92 kg

DRUGS (3)
  1. PEGASYS [Suspect]
     Indication: HEPATITIS C
     Route: 058
     Dates: start: 20130611
  2. RIBAVIRIN [Suspect]
     Indication: HEPATITIS C
     Route: 048
     Dates: start: 20130611
  3. FOLIC ACID [Concomitant]
     Dosage: 2 TABLETS
     Route: 048
     Dates: start: 20131028

REACTIONS (3)
  - Syncope [Not Recovered/Not Resolved]
  - Thirst [Not Recovered/Not Resolved]
  - Depression [Not Recovered/Not Resolved]
